FAERS Safety Report 19641826 (Version 5)
Quarter: 2021Q4

REPORT INFORMATION
  Report Type: Spontaneous
  Country: FR (occurrence: FR)
  Receive Date: 20210730
  Receipt Date: 20211116
  Transmission Date: 20220303
  Serious: Yes (Hospitalization, Other)
  Sender: FDA-Public Use
  Company Number: None

PATIENT
  Age: 48 Year
  Sex: Male
  Weight: 69.5 kg

DRUGS (9)
  1. COMIRNATY [Suspect]
     Active Substance: TOZINAMERAN
     Indication: COVID-19 immunisation
     Dosage: DOSE 1, SINGLE
     Route: 030
     Dates: start: 20210521, end: 20210521
  2. PREVENAR [Suspect]
     Active Substance: PNEUMOCOCCAL 7-VALENT CONJUGATE VACCINE (DIPHTHERIA CRM197 PROTEIN)
     Indication: Immunisation
     Dosage: DOSE NUMBER UNKNOWN, SINGLE
     Route: 030
     Dates: start: 20210521, end: 20210521
  3. RITUXIMAB [Suspect]
     Active Substance: RITUXIMAB
     Indication: Granulomatosis with polyangiitis
     Dosage: 700 MG, SINGLE
     Route: 042
     Dates: start: 20210609, end: 20210609
  4. RITUXIMAB [Suspect]
     Active Substance: RITUXIMAB
     Dosage: 700 MG, SINGLE
     Route: 042
     Dates: start: 20210616, end: 20210616
  5. RITUXIMAB [Suspect]
     Active Substance: RITUXIMAB
     Dosage: 2 DF
     Route: 017
     Dates: start: 20210609, end: 20210616
  6. PREDNISONE [Suspect]
     Active Substance: PREDNISONE
     Indication: Granulomatosis with polyangiitis
     Dosage: 60 MG, 1X/DAY
     Route: 048
     Dates: start: 202103
  7. BACTRIM [Suspect]
     Active Substance: SULFAMETHOXAZOLE\TRIMETHOPRIM
     Indication: Granulomatosis with polyangiitis
     Dosage: 2 DF, 1X/DAY
     Route: 048
     Dates: start: 202103
  8. OXYCODONE HYDROCHLORIDE [Suspect]
     Active Substance: OXYCODONE HYDROCHLORIDE
     Indication: Pain
     Dosage: UNK
     Route: 048
  9. OXYCODONE HYDROCHLORIDE [Suspect]
     Active Substance: OXYCODONE HYDROCHLORIDE
     Dosage: UNK
     Route: 048

REACTIONS (8)
  - Myocarditis [Recovering/Resolving]
  - Troponin increased [Unknown]
  - Chest pain [Unknown]
  - Hyperhidrosis [Unknown]
  - Product use issue [Unknown]
  - Off label use [Unknown]
  - Off label use [Unknown]
  - Incorrect route of product administration [Unknown]

NARRATIVE: CASE EVENT DATE: 20210521
